FAERS Safety Report 15147115 (Version 1)
Quarter: 2018Q3

REPORT INFORMATION
  Report Type: Report from Study
  Country: DE (occurrence: DE)
  Receive Date: 20180716
  Receipt Date: 20180716
  Transmission Date: 20181010
  Serious: Yes (Death, Hospitalization, Other)
  Sender: FDA-Public Use
  Company Number: DE-TEVA-2018-DE-924963

PATIENT
  Age: 80 Year
  Sex: Male
  Weight: 85 kg

DRUGS (20)
  1. DEXAMETHASONE. [Suspect]
     Active Substance: DEXAMETHASONE
     Indication: PLASMA CELL MYELOMA
     Route: 065
     Dates: start: 20161124, end: 20161215
  2. REVLIMID [Suspect]
     Active Substance: LENALIDOMIDE
     Route: 048
     Dates: start: 20170104, end: 20170115
  3. BONDRONAT [Concomitant]
     Active Substance: IBANDRONATE SODIUM
     Dosage: 4 MILLIGRAM?DOSA TEXT
     Route: 041
     Dates: start: 20161123, end: 20170108
  4. DELIX (RAMIPRIL) [Concomitant]
     Active Substance: RAMIPRIL
     Indication: HYPERTENSION
     Dosage: 5 MILLIGRAM DAILY; 5 MILLIGRAM
     Route: 048
  5. ATROVENT/SALBUTAMOL [Concomitant]
     Active Substance: ALBUTEROL\IPRATROPIUM BROMIDE
     Indication: CHRONIC OBSTRUCTIVE PULMONARY DISEASE
     Route: 055
  6. BONDRONAT [Concomitant]
     Active Substance: IBANDRONATE SODIUM
     Dosage: 2 MILLIGRAM
     Route: 041
     Dates: start: 20170109
  7. SEEBRI BREEZHALER [Concomitant]
     Active Substance: GLYCOPYRROLATE
     Indication: CHRONIC OBSTRUCTIVE PULMONARY DISEASE
     Dosage: 44 MICROGRAM DAILY; 44 MICROGRAM
     Route: 055
  8. SIMVABETA [Concomitant]
     Active Substance: SIMVASTATIN
     Indication: PROPHYLAXIS
     Dosage: 40 MILLIGRAM DAILY; 40 MILLIGRAM
     Route: 048
  9. LANTUS [Concomitant]
     Active Substance: INSULIN GLARGINE
     Indication: TYPE 2 DIABETES MELLITUS
     Dosage: 3 ML DAILY; 3 MILLILITER
     Route: 058
  10. TOREM [Concomitant]
     Active Substance: TORSEMIDE
     Indication: PROPHYLAXIS
     Dosage: 10 MILLIGRAM DAILY; 10 MILLIGRAM
     Route: 048
  11. BERINSULIN H [Concomitant]
     Indication: TYPE 2 DIABETES MELLITUS
     Dosage: 3 ML DAILY; 9 MILLILITER
     Route: 058
  12. DEXAMETHASONE. [Suspect]
     Active Substance: DEXAMETHASONE
     Route: 065
     Dates: start: 20170104, end: 20170111
  13. CORVARTON [Concomitant]
     Indication: PROPHYLAXIS
     Dosage: 8 MILLIGRAM DAILY; 8 MILLIGRAM
     Route: 048
  14. METHIOZOL [Concomitant]
     Indication: HYPOTHYROIDISM
     Dosage: 5 MILLIGRAM DAILY; 5 MILLIGRAM
     Route: 048
  15. CLEXANE [Concomitant]
     Active Substance: ENOXAPARIN SODIUM
     Indication: PROPHYLAXIS
     Dosage: 80 MILLIGRAM DAILY; 160 MILLIGRAM
     Route: 058
     Dates: end: 20161221
  16. REVLIMID [Suspect]
     Active Substance: LENALIDOMIDE
     Indication: PLASMA CELL MYELOMA
     Route: 048
     Dates: start: 20161124, end: 20161214
  17. BISOPROLOL [Concomitant]
     Active Substance: BISOPROLOL
     Indication: HYPERTENSION
     Dosage: 5 MILLIGRAM DAILY; 5 MILLIGRAM
     Route: 048
  18. ASPIRIN. [Concomitant]
     Active Substance: ASPIRIN
     Indication: PROPHYLAXIS
     Dosage: 100 MILLIGRAM DAILY; 100 MILLIGRAM
     Route: 048
  19. INNOHEP [Concomitant]
     Active Substance: TINZAPARIN SODIUM
     Indication: PROPHYLAXIS
     Dosage: .4 MILLIGRAM DAILY; .4 MILLILITER
     Route: 058
     Dates: start: 20161223
  20. PALLADON [Concomitant]
     Active Substance: HYDROMORPHONE
     Indication: PROPHYLAXIS
     Route: 048

REACTIONS (7)
  - White blood cell count decreased [Unknown]
  - White blood cell count decreased [Recovered/Resolved]
  - Neutrophil count decreased [Recovered/Resolved]
  - Platelet count decreased [Recovered/Resolved]
  - Chronic kidney disease [Recovered/Resolved]
  - Renal failure [Fatal]
  - Platelet count decreased [Unknown]

NARRATIVE: CASE EVENT DATE: 20161124
